FAERS Safety Report 18491244 (Version 1)
Quarter: 2020Q4

REPORT INFORMATION
  Report Type: Spontaneous
  Country: US (occurrence: US)
  Receive Date: 20201111
  Receipt Date: 20201111
  Transmission Date: 20210114
  Serious: Yes (Disabling)
  Sender: FDA-Public Use
  Company Number: None

PATIENT
  Age: 55 Year
  Sex: Male
  Weight: 112.5 kg

DRUGS (15)
  1. BABY ASPIRIN [Concomitant]
     Active Substance: ASPIRIN
  2. MULTI VITAMIN [Concomitant]
     Active Substance: VITAMINS
  3. HYDRALAZINE [Suspect]
     Active Substance: HYDRALAZINE HYDROCHLORIDE
  4. QUINAPRIL. [Suspect]
     Active Substance: QUINAPRIL
  5. LOSARTAN. [Concomitant]
     Active Substance: LOSARTAN
  6. HYDRALAZINE HYDRACHLORIDE [Concomitant]
  7. FISH OIL [Concomitant]
     Active Substance: FISH OIL
  8. LISINOPRIL. [Suspect]
     Active Substance: LISINOPRIL
  9. HYDROCHLOROTHIAZIDE. [Suspect]
     Active Substance: HYDROCHLOROTHIAZIDE
  10. ATENOLOL. [Suspect]
     Active Substance: ATENOLOL
     Indication: HYPERTENSION
     Route: 048
     Dates: start: 20091102, end: 20100805
  11. AMLODIPINE [Suspect]
     Active Substance: AMLODIPINE BESYLATE
  12. PROPRANOLOL [Suspect]
     Active Substance: PROPRANOLOL HYDROCHLORIDE
  13. VITAMIN C [Concomitant]
     Active Substance: ASCORBIC ACID
  14. CALCIUM [Concomitant]
     Active Substance: CALCIUM
  15. LOSARTAN. [Suspect]
     Active Substance: LOSARTAN

REACTIONS (16)
  - Nausea [None]
  - Thirst [None]
  - Tinnitus [None]
  - Hyperhidrosis [None]
  - Deafness [None]
  - Constipation [None]
  - Diarrhoea [None]
  - Paraesthesia [None]
  - Blood pressure fluctuation [None]
  - Chest pain [None]
  - Dizziness [None]
  - Headache [None]
  - Blindness [None]
  - Hypoaesthesia [None]
  - Malaise [None]
  - Feeling abnormal [None]

NARRATIVE: CASE EVENT DATE: 20201111
